FAERS Safety Report 5573553-8 (Version None)
Quarter: 2007Q4

REPORT INFORMATION
  Report Type: 
  Country: None (occurrence: None)
  Receive Date: 20071220
  Receipt Date: 20071220
  Transmission Date: 20080405
  Serious: Yes (Hospitalization)
  Sender: FDA-Public Use
  Company Number: None

PATIENT
  Age: 61 Year
  Sex: Male

DRUGS (1)
  1. METHIMAZOLE [Suspect]
     Dates: start: 20070904, end: 20071102

REACTIONS (1)
  - AGRANULOCYTOSIS [None]
